FAERS Safety Report 12350211 (Version 1)
Quarter: 2016Q2

REPORT INFORMATION
  Report Type: Spontaneous
  Country: US (occurrence: None)
  Receive Date: 20160509
  Receipt Date: 20160509
  Transmission Date: 20160815
  Serious: No
  Sender: FDA-Public Use
  Company Number: None

PATIENT
  Age: 17 Year
  Sex: Female
  Weight: 45.36 kg

DRUGS (1)
  1. CREST PRO-HEALTH SENSITIVE SHIELD SMOOTH MINT [Suspect]
     Active Substance: STANNOUS FLUORIDE
     Indication: DENTAL DISORDER PROPHYLAXIS
     Dates: start: 20160506, end: 20160506

REACTIONS (1)
  - Hypersensitivity [None]

NARRATIVE: CASE EVENT DATE: 20160506
